FAERS Safety Report 6788268-8 (Version None)
Quarter: 2010Q2

REPORT INFORMATION
  Report Type: 
  Country: None (occurrence: None)
  Receive Date: 20100623
  Receipt Date: 20080221
  Transmission Date: 20101027
  Serious: Yes (Other)
  Sender: FDA-Public Use
  Company Number: US-PFIZER INC-2008014801

PATIENT
  Sex: Male
  Weight: 102.1 kg

DRUGS (3)
  1. GEODON [Suspect]
     Indication: SCHIZOPHRENIA
     Dates: start: 20080214
  2. WELLBUTRIN [Concomitant]
  3. HYDROXYZINE [Concomitant]

REACTIONS (6)
  - DIARRHOEA [None]
  - FEELING JITTERY [None]
  - HALLUCINATION [None]
  - NERVOUSNESS [None]
  - SWELLING FACE [None]
  - VISION BLURRED [None]
